FAERS Safety Report 25792900 (Version 2)
Quarter: 2025Q3

REPORT INFORMATION
  Report Type: Spontaneous
  Country: EU (occurrence: EU)
  Receive Date: 20250911
  Receipt Date: 20250916
  Transmission Date: 20251021
  Serious: Yes (Hospitalization)
  Sender: MERCK SHARP & DOHME LLC
  Company Number: EU-009507513-2313993

PATIENT
  Age: 22 Year
  Sex: Female

DRUGS (4)
  1. SOTATERCEPT [Suspect]
     Active Substance: SOTATERCEPT
     Indication: Pulmonary arterial hypertension
     Dosage: INITIAL DOSE ON 0.3 MG/KG AND THEN THE SUBSEQUENT DOSE WAS 0.5 MG/KG
     Route: 058
  2. SOTATERCEPT [Suspect]
     Active Substance: SOTATERCEPT
  3. SOTATERCEPT [Suspect]
     Active Substance: SOTATERCEPT
  4. SOTATERCEPT [Suspect]
     Active Substance: SOTATERCEPT

REACTIONS (7)
  - Staphylococcal infection [Unknown]
  - Epistaxis [Unknown]
  - Headache [Unknown]
  - Incorrect dose administered [Unknown]
  - Acne [Unknown]
  - Device related infection [Unknown]
  - Phlebitis [Unknown]
